FAERS Safety Report 10096037 (Version 3)
Quarter: 2014Q2

REPORT INFORMATION
  Report Type: Report from Study
  Country: AU (occurrence: AU)
  Receive Date: 20140422
  Receipt Date: 20140519
  Transmission Date: 20141212
  Serious: Yes (Hospitalization)
  Sender: FDA-Public Use
  Company Number: AU-GLAXOSMITHKLINE-B0896594C

PATIENT
  Age: 60 Year
  Sex: Male

DRUGS (18)
  1. PAZOPANIB [Suspect]
     Indication: METASTATIC RENAL CELL CARCINOMA
     Dosage: 800MG PER DAY
     Route: 048
     Dates: start: 20130215, end: 20140311
  2. EVEROLIMUS [Suspect]
     Indication: METASTATIC RENAL CELL CARCINOMA
     Dosage: 10MG PER DAY
     Route: 048
     Dates: start: 20140312
  3. AMARYL [Concomitant]
     Indication: DIABETES MELLITUS
     Dosage: 2MG PER DAY
     Route: 048
     Dates: start: 20080101, end: 20131101
  4. AVAPRO [Concomitant]
     Indication: HYPERTENSION
     Dosage: 300MG PER DAY
     Route: 048
     Dates: start: 20080101, end: 20130620
  5. CARTIA [Concomitant]
     Indication: PROPHYLAXIS
     Dosage: 100MG PER DAY
     Route: 048
     Dates: start: 20120101, end: 20130602
  6. LIPITOR [Concomitant]
     Indication: HYPERLIPIDAEMIA
     Dosage: 20MG PER DAY
     Route: 048
     Dates: start: 20080101
  7. DIABEX [Concomitant]
     Indication: DIABETES MELLITUS
     Dosage: 2MG PER DAY
     Route: 048
     Dates: start: 20080101, end: 20131101
  8. COLOXYL WITH SENNA [Concomitant]
     Indication: CONSTIPATION PROPHYLAXIS
     Dosage: 2MG PER DAY
     Route: 048
     Dates: start: 20121001, end: 20130312
  9. ENDONE [Concomitant]
     Indication: PAIN IN EXTREMITY
     Dosage: 5MG PER DAY
     Route: 048
     Dates: start: 20121001
  10. PANADOL [Concomitant]
     Indication: PAIN
     Dosage: 500MG PER DAY
     Route: 048
     Dates: start: 20121001
  11. MAXOLON [Concomitant]
     Indication: NAUSEA
     Dosage: 10MG PER DAY
     Route: 048
     Dates: start: 20130501
  12. DEXAMETHASONE [Concomitant]
     Indication: ABSCESS NECK
     Dosage: 10MG PER DAY
     Route: 048
     Dates: start: 20130602
  13. TAZOCIN [Concomitant]
     Indication: METASTATIC RENAL CELL CARCINOMA
     Route: 042
     Dates: start: 20130602, end: 20130618
  14. ANTIBIOTIC [Concomitant]
     Indication: PROPHYLAXIS
     Route: 048
     Dates: start: 20130701, end: 20130701
  15. VOLTAREN GEL [Concomitant]
     Indication: MUSCULOSKELETAL PAIN
     Route: 061
     Dates: start: 20140209
  16. NUROFEN [Concomitant]
     Indication: MUSCULOSKELETAL PAIN
     Dosage: 2MG PER DAY
     Route: 048
     Dates: start: 20140209
  17. TARGIN [Concomitant]
     Dosage: 10MG PER DAY
     Route: 048
     Dates: start: 20140218, end: 20140221
  18. CORTISONE INJECTION [Concomitant]
     Indication: MUSCULOSKELETAL PAIN
     Route: 014
     Dates: start: 20131223, end: 20131223

REACTIONS (1)
  - Blood glucose increased [Recovered/Resolved]
